FAERS Safety Report 7873021 (Version 2)
Quarter: 2013Q1

REPORT INFORMATION
  Report Type: Spontaneous
  Country: GB (occurrence: GB)
  Receive Date: 20110328
  Receipt Date: 20130207
  Transmission Date: 20140127
  Serious: Yes (Other)
  Sender: FDA-Public Use
  Company Number: GB-RANBAXY-2011R1-42916

PATIENT
  Age: 47 Year
  Sex: Female

DRUGS (6)
  1. OXCARBAZEPINE [Suspect]
     Indication: EPILEPSY
     Dosage: UNK
     Route: 065
  2. LACOSAMIDE [Interacting]
     Indication: EPILEPSY
     Dosage: 100 MG/DAY
     Route: 065
  3. LACOSAMIDE [Interacting]
     Indication: EPILEPSY
     Dosage: 200 MG/DAY
     Route: 065
  4. CLONAZEPAM [Concomitant]
     Indication: EPILEPSY
     Dosage: 1.5 MG DAILY
     Route: 065
  5. DIAZEPAM [Concomitant]
     Indication: EPILEPSY
     Dosage: UNK
     Route: 065
  6. LEVETIRACETAM [Concomitant]
     Indication: EPILEPSY
     Dosage: UNK
     Route: 065

REACTIONS (5)
  - Neurotoxicity [Recovered/Resolved]
  - Drug interaction [Recovered/Resolved]
  - Vertigo [Recovered/Resolved]
  - Diplopia [Recovered/Resolved]
  - Ataxia [Recovered/Resolved]
